FAERS Safety Report 9035477 (Version 1)
Quarter: 2013Q1

REPORT INFORMATION
  Report Type: Report from Study
  Country: US (occurrence: US)
  Receive Date: 20130129
  Receipt Date: 20130129
  Transmission Date: 20140127
  Serious: No
  Sender: FDA-Public Use
  Company Number: US-ABBOTT-12P-163-0906262-00

PATIENT
  Sex: Female
  Weight: 86.26 kg

DRUGS (8)
  1. HUMIRA 40 MG/ 0.8 ML PRE-FILLED SYRINGE [Suspect]
     Indication: RHEUMATOID ARTHRITIS
     Dates: end: 200910
  2. HUMIRA 40 MG/ 0.8 ML PRE-FILLED SYRINGE [Suspect]
     Dates: start: 2010
  3. LEFLUNOMIDE [Concomitant]
     Indication: RHEUMATOID ARTHRITIS
  4. CYCLOBENZAPRINE [Concomitant]
     Indication: MUSCLE SPASMS
  5. TRAMADOL [Concomitant]
     Indication: PAIN
  6. SYMBICORT [Concomitant]
     Indication: ASTHMA
  7. PROVENTIL [Concomitant]
     Indication: ASTHMA
     Dosage: RESCUE INHALER
  8. ALLEGRA [Concomitant]
     Indication: ALLERGY PROPHYLAXIS

REACTIONS (1)
  - Drug effect incomplete [Not Recovered/Not Resolved]
